FAERS Safety Report 8550948-1 (Version None)
Quarter: 2012Q3

REPORT INFORMATION
  Report Type: 
  Country: None (occurrence: None)
  Receive Date: 20120730
  Receipt Date: 20120720
  Transmission Date: 20120928
  Serious: Yes (Other)
  Sender: FDA-Public Use
  Company Number: JP-VERTEX PHARMACEUTICALS INC.-AE-2012-010957

PATIENT
  Age: 52 Year
  Sex: Male

DRUGS (5)
  1. REBETOL [Concomitant]
     Route: 048
     Dates: start: 20120709
  2. PEG-INTRON [Concomitant]
     Route: 058
     Dates: start: 20120709
  3. TELAVIC (TELAPREVIR) [Suspect]
     Route: 048
     Dates: start: 20120713
  4. TELAVIC (TELAPREVIR) [Suspect]
     Route: 048
     Dates: start: 20120709
  5. PEG-INTRON [Concomitant]
     Route: 058
     Dates: start: 20120716

REACTIONS (1)
  - NEUTROPHIL COUNT DECREASED [None]
